FAERS Safety Report 19513407 (Version 2)
Quarter: 2021Q4

REPORT INFORMATION
  Report Type: Report from Study
  Country: IN (occurrence: IN)
  Receive Date: 20210709
  Receipt Date: 20211125
  Transmission Date: 20220303
  Serious: Yes (Other)
  Sender: FDA-Public Use
  Company Number: IN-NOVARTISPH-NVSC2021IN051174

PATIENT
  Age: 48 Year
  Sex: Female

DRUGS (2)
  1. TASIGNA [Suspect]
     Active Substance: NILOTINIB
     Indication: Chronic myeloid leukaemia
     Dosage: 300 MG, BID
     Route: 065
     Dates: start: 20180824, end: 20211116
  2. TASIGNA [Suspect]
     Active Substance: NILOTINIB
     Dosage: 300 MG, BID
     Route: 065
     Dates: start: 20180828, end: 20210627

REACTIONS (4)
  - Hepatic infection [Unknown]
  - Rash [Unknown]
  - Abdominal pain [Unknown]
  - Pyrexia [Unknown]

NARRATIVE: CASE EVENT DATE: 20210223
